FAERS Safety Report 5567128-4 (Version None)
Quarter: 2007Q4

REPORT INFORMATION
  Report Type: 
  Country: None (occurrence: None)
  Receive Date: 20071219
  Receipt Date: 20071211
  Transmission Date: 20080405
  Serious: Yes (Life-Threatening, Hospitalization, Other)
  Sender: FDA-Public Use
  Company Number: CH-ABBOTT-07P-151-0427657-00

PATIENT
  Age: 59 Year
  Sex: Female

DRUGS (7)
  1. KALETRA [Suspect]
     Indication: HIV INFECTION
     Route: 048
  2. CIPROFLOXACIN [Interacting]
     Indication: DRUG USE FOR UNKNOWN INDICATION
     Route: 048
     Dates: start: 20071021, end: 20071022
  3. SAQUINAVIR MESILATE [Interacting]
     Indication: DRUG USE FOR UNKNOWN INDICATION
     Route: 048
  4. DILTIAZEM [Interacting]
     Indication: DRUG USE FOR UNKNOWN INDICATION
     Dates: start: 20070901
  5. ABACAVIR SULFATE [Concomitant]
     Indication: DRUG USE FOR UNKNOWN INDICATION
     Route: 048
  6. METRONIDAZOLE HCL [Concomitant]
     Indication: DRUG USE FOR UNKNOWN INDICATION
     Route: 048
  7. ESOMEPRAZOLE MAGNESIUM [Concomitant]
     Indication: DRUG USE FOR UNKNOWN INDICATION
     Dosage: 2X44.5MG
     Route: 048

REACTIONS (3)
  - BRADYCARDIA [None]
  - DRUG INTERACTION [None]
  - ELECTROCARDIOGRAM QT PROLONGED [None]
